FAERS Safety Report 25925500 (Version 1)
Quarter: 2025Q4

REPORT INFORMATION
  Report Type: Spontaneous
  Country: CN (occurrence: CN)
  Receive Date: 20251015
  Receipt Date: 20251015
  Transmission Date: 20260118
  Serious: Yes (Hospitalization)
  Sender: MALLINCKRODT
  Company Number: CN-MALLINCKRODT-MNK202506355

PATIENT
  Age: 40 Week
  Sex: Female
  Weight: 3 kg

DRUGS (8)
  1. NITRIC OXIDE [Suspect]
     Active Substance: NITRIC OXIDE
     Indication: Pulmonary hypertension
     Dosage: UNKNOWN
  2. AMPICILLIN [Concomitant]
     Active Substance: AMPICILLIN
     Dosage: UNKNOWN
  3. AMPICILLIN [Concomitant]
     Active Substance: AMPICILLIN
     Dosage: UNKNOWN
  4. CEFOTAXIME [Concomitant]
     Active Substance: CEFOTAXIME SODIUM
     Dosage: UNKNOWN
  5. DOPAMINE [Concomitant]
     Active Substance: DOPAMINE HYDROCHLORIDE
     Dosage: UNKNOWN
  6. EPINEPHRINE [Concomitant]
     Active Substance: EPINEPHRINE
     Dosage: UNKNOWN
  7. NOREPINEPHRINE BITARTRATE [Concomitant]
     Active Substance: NOREPINEPHRINE BITARTRATE
     Dosage: UNKNOWN
  8. HYDROCORTISONE [Concomitant]
     Active Substance: HYDROCORTISONE
     Dosage: UNKNOWN

REACTIONS (1)
  - Streptococcal bacteraemia [Recovering/Resolving]
